FAERS Safety Report 4985106-0 (Version None)
Quarter: 2006Q2

REPORT INFORMATION
  Report Type: 
  Country: None (occurrence: None)
  Receive Date: 20060427
  Receipt Date: 20060208
  Transmission Date: 20061013
  Serious: Yes (Other)
  Sender: FDA-Public Use
  Company Number: FI-ABBOTT-06P-055-0324494-00

PATIENT
  Sex: Female

DRUGS (9)
  1. HUMIRA [Suspect]
     Indication: RHEUMATOID ARTHRITIS
     Route: 058
     Dates: start: 20050112, end: 20051201
  2. TRAMADOL HCL [Concomitant]
     Indication: DRUG USE FOR UNKNOWN INDICATION
     Route: 048
  3. TRAMADOL HCL [Concomitant]
     Route: 048
  4. LYRICA [Concomitant]
     Indication: DRUG USE FOR UNKNOWN INDICATION
  5. ARCOXIA TABLET [Concomitant]
     Indication: DRUG USE FOR UNKNOWN INDICATION
  6. LOSARTAN POTASSIUM [Concomitant]
     Indication: DRUG USE FOR UNKNOWN INDICATION
     Route: 048
  7. AMLODIPINE BESYLATE [Concomitant]
     Indication: DRUG USE FOR UNKNOWN INDICATION
  8. HYDROCHLOROTHIAZIDE [Concomitant]
     Indication: DRUG USE FOR UNKNOWN INDICATION
  9. PREDNISOLONE [Concomitant]
     Indication: DRUG USE FOR UNKNOWN INDICATION
     Route: 048

REACTIONS (3)
  - BONE LESION [None]
  - FEELING ABNORMAL [None]
  - OSTEONECROSIS [None]
